FAERS Safety Report 5853088-5 (Version None)
Quarter: 2008Q3

REPORT INFORMATION
  Report Type: 
  Country: None (occurrence: None)
  Receive Date: 20080821
  Receipt Date: 20080812
  Transmission Date: 20090109
  Serious: Yes (Hospitalization)
  Sender: FDA-Public Use
  Company Number: IE-ELI_LILLY_AND_COMPANY-IE200808002439

PATIENT
  Sex: Female

DRUGS (4)
  1. PROZAC [Suspect]
     Indication: DEPRESSION
     Dates: end: 20071201
  2. PROZAC [Suspect]
     Dosage: UNK, UNK
     Dates: start: 20080725, end: 20080701
  3. LETROZOLE [Concomitant]
     Indication: BREAST CANCER
     Dosage: 1 MG, DAILY (1/D)
     Route: 048
  4. ANASTROZOLE [Concomitant]
     Indication: BREAST CANCER
     Dosage: 1 MG, DAILY (1/D)
     Route: 048

REACTIONS (14)
  - AMNESIA [None]
  - BALANCE DISORDER [None]
  - BLADDER PAIN [None]
  - BRAIN MASS [None]
  - CONFUSIONAL STATE [None]
  - DIZZINESS [None]
  - DRUG WITHDRAWAL SYNDROME [None]
  - FAECAL INCONTINENCE [None]
  - FALL [None]
  - GAIT DISTURBANCE [None]
  - HEADACHE [None]
  - MEMORY IMPAIRMENT [None]
  - NAUSEA [None]
  - URINARY TRACT DISORDER [None]
